FAERS Safety Report 6661624-4 (Version None)
Quarter: 2010Q1

REPORT INFORMATION
  Report Type: 
  Country: None (occurrence: None)
  Receive Date: 20100331
  Receipt Date: 20090526
  Transmission Date: 20100710
  Serious: Yes (Death, Other)
  Sender: FDA-Public Use
  Company Number: US-BRISTOL-MYERS SQUIBB COMPANY-14528939

PATIENT
  Age: 60 Year
  Sex: Male

DRUGS (9)
  1. ERBITUX [Suspect]
     Indication: COLON CANCER
     Route: 042
     Dates: start: 20090217
  2. MORPHINE [Concomitant]
  3. TETRACYCLINE [Concomitant]
  4. LACTULOSE [Concomitant]
  5. FERROUS SULFATE TAB [Concomitant]
  6. ACETAMINOPHEN [Concomitant]
  7. OMEPRAZOLE [Concomitant]
  8. PROCHLORPERAZINE [Concomitant]
  9. ADVAIR DISKUS 100/50 [Concomitant]
     Route: 055

REACTIONS (2)
  - ANAPHYLACTIC REACTION [None]
  - MALIGNANT NEOPLASM PROGRESSION [None]
